FAERS Safety Report 7153791-3 (Version None)
Quarter: 2010Q4

REPORT INFORMATION
  Report Type: 
  Country: None (occurrence: None)
  Receive Date: 20101213
  Receipt Date: 20101008
  Transmission Date: 20110411
  Serious: No
  Sender: FDA-Public Use
  Company Number: US-ABBOTT-10P-163-0670560-00

PATIENT
  Age: 48 Year
  Sex: Female
  Weight: 68.1 kg

DRUGS (7)
  1. MERIDIA [Suspect]
     Indication: WEIGHT DECREASED
     Route: 048
     Dates: start: 20100301, end: 20100501
  2. MERIDIA [Suspect]
     Indication: WEIGHT DECREASED
     Dates: start: 20100503, end: 20100622
  3. CYCLOBENZAPRINE [Concomitant]
     Indication: FIBROMYALGIA
     Dosage: 10MG, 1 IN 1 DAY, AT HOUR OF SLEEP
  4. PRAVASTATIN [Concomitant]
     Indication: BLOOD CHOLESTEROL INCREASED
     Dates: start: 20100301, end: 20100601
  5. OMEGA 3 TRIPLE [Concomitant]
     Indication: PRODUCT USED FOR UNKNOWN INDICATION
  6. ASPIRIN [Concomitant]
     Indication: PRODUCT USED FOR UNKNOWN INDICATION
  7. IMITREX [Concomitant]
     Indication: MIGRAINE

REACTIONS (6)
  - BLOOD PRESSURE INCREASED [None]
  - DRUG INEFFECTIVE [None]
  - HEADACHE [None]
  - HEART RATE INCREASED [None]
  - NERVOUSNESS [None]
  - PALPITATIONS [None]
